FAERS Safety Report 21069018 (Version 2)
Quarter: 2022Q3

REPORT INFORMATION
  Report Type: Spontaneous
  Country: CA (occurrence: CA)
  Receive Date: 20220712
  Receipt Date: 20220718
  Transmission Date: 20221026
  Serious: Yes (Other)
  Sender: FDA-Public Use
  Company Number: CA-PFIZER INC-PV202200012552

PATIENT
  Age: 56 Year
  Sex: Male

DRUGS (1)
  1. DEPO-MEDROL [Suspect]
     Active Substance: METHYLPREDNISOLONE ACETATE
     Indication: Osteoarthritis
     Dosage: UNK
     Route: 014
     Dates: start: 201806

REACTIONS (10)
  - Anaphylactic reaction [Unknown]
  - Flushing [Unknown]
  - Pruritus [Unknown]
  - Dyspnoea [Unknown]
  - Wheezing [Unknown]
  - Chest pain [Unknown]
  - Hypotension [Unknown]
  - Palpitations [Unknown]
  - Hypoxia [Unknown]
  - Syncope [Unknown]

NARRATIVE: CASE EVENT DATE: 20180601
